FAERS Safety Report 9961260 (Version 1)
Quarter: 2014Q1

REPORT INFORMATION
  Report Type: Report from Study
  Country: DE (occurrence: DE)
  Receive Date: 20140305
  Receipt Date: 20140305
  Transmission Date: 20141002
  Serious: Yes (Congenital Anomaly)
  Sender: FDA-Public Use
  Company Number: DE-MYLANLABS-2014S1004149

PATIENT
  Sex: Female

DRUGS (1)
  1. LOSARTAN [Suspect]
     Dosage: 50 MG/DAY
     Route: 064

REACTIONS (6)
  - Foetal exposure during pregnancy [Unknown]
  - Oligohydramnios [Unknown]
  - Congenital renal disorder [Unknown]
  - Renal impairment neonatal [Unknown]
  - Microcephaly [Unknown]
  - Renal impairment [Unknown]
